FAERS Safety Report 11633483 (Version 2)
Quarter: 2015Q4

REPORT INFORMATION
  Report Type: Spontaneous
  Country: US (occurrence: US)
  Receive Date: 20151015
  Receipt Date: 20151126
  Transmission Date: 20160304
  Serious: Yes (Other)
  Sender: FDA-Public Use
  Company Number: US-AMGEN-USASP2015106669

PATIENT
  Age: 73 Year
  Sex: Female

DRUGS (1)
  1. NEULASTA [Suspect]
     Active Substance: PEGFILGRASTIM
     Indication: PRODUCT USED FOR UNKNOWN INDICATION
     Dosage: UNK, UNK
     Route: 065

REACTIONS (7)
  - Skin tightness [Unknown]
  - Fear of falling [Unknown]
  - Back pain [Unknown]
  - Lacrimation increased [Unknown]
  - Pain in extremity [Unknown]
  - Pain [Unknown]
  - Lung neoplasm malignant [Unknown]
